FAERS Safety Report 11758378 (Version 1)
Quarter: 2015Q4

REPORT INFORMATION
  Report Type: Spontaneous
  Country: US (occurrence: None)
  Receive Date: 20151119
  Receipt Date: 20151119
  Transmission Date: 20160304
  Serious: No
  Sender: FDA-Public Use
  Company Number: None

PATIENT
  Age: 51 Year
  Sex: Female

DRUGS (1)
  1. TECFIDERA [Suspect]
     Active Substance: DIMETHYL FUMARATE
     Indication: MULTIPLE SCLEROSIS
     Route: 048
     Dates: start: 20151014, end: 20151105

REACTIONS (4)
  - Abdominal distension [None]
  - Rash pruritic [None]
  - Dry skin [None]
  - Rash [None]

NARRATIVE: CASE EVENT DATE: 20151105
